FAERS Safety Report 6076041-8 (Version None)
Quarter: 2009Q1

REPORT INFORMATION
  Report Type: 
  Country: None (occurrence: None)
  Receive Date: 20090212
  Receipt Date: 20090205
  Transmission Date: 20090719
  Serious: Yes (Other)
  Sender: FDA-Public Use
  Company Number: GB-BRISTOL-MYERS SQUIBB COMPANY-14502066

PATIENT
  Sex: Male

DRUGS (5)
  1. REYATAZ [Suspect]
     Route: 064
     Dates: start: 20020101
  2. DIDANOSINE [Suspect]
     Indication: HIV INFECTION
     Route: 064
     Dates: start: 20020101, end: 20080630
  3. TENOFOVIR [Suspect]
     Indication: HIV INFECTION
     Route: 064
     Dates: start: 20020101, end: 20080630
  4. RITONAVIR [Suspect]
     Indication: HIV INFECTION
     Route: 064
     Dates: start: 20020101
  5. TRUVADA [Suspect]
     Indication: HIV INFECTION
     Dosage: 1 DOSAGE FORM=1 .UNITS NOT SPECIFIED
     Route: 064
     Dates: start: 20080101

REACTIONS (1)
  - FOETAL DISTRESS SYNDROME [None]
